FAERS Safety Report 20977202 (Version 1)
Quarter: 2022Q2

REPORT INFORMATION
  Report Type: Spontaneous
  Country: NO (occurrence: NO)
  Receive Date: 20220617
  Receipt Date: 20220617
  Transmission Date: 20220721
  Serious: Yes (Disabling)
  Sender: FDA-Public Use
  Company Number: NO-SA-2020SA357523

PATIENT
  Age: 88 Year
  Sex: Female

DRUGS (8)
  1. CARDIZEM [Suspect]
     Active Substance: DILTIAZEM HYDROCHLORIDE
     Indication: Atrial flutter
     Route: 048
     Dates: start: 20200911, end: 20201027
  2. CARDIZEM [Suspect]
     Active Substance: DILTIAZEM HYDROCHLORIDE
     Route: 048
     Dates: start: 20200911, end: 20201027
  3. ISOPTIN [Suspect]
     Active Substance: VERAPAMIL HYDROCHLORIDE
     Indication: Atrial flutter
     Route: 048
     Dates: end: 20200911
  4. RISPERDAL [Concomitant]
     Active Substance: RISPERIDONE
     Indication: Product used for unknown indication
     Dates: start: 202006, end: 20201110
  5. BUMETANIDE [Concomitant]
     Active Substance: BUMETANIDE
     Indication: Cardiac failure
  6. ATENOLOL [Concomitant]
     Active Substance: ATENOLOL
     Indication: Atrial flutter
  7. BIOCARN [Concomitant]
     Indication: Carnitine deficiency
     Dates: start: 202006
  8. ELIQUIS [Concomitant]
     Active Substance: APIXABAN
     Indication: Atrial flutter

REACTIONS (5)
  - Mood swings [Recovering/Resolving]
  - Feeling of despair [Recovering/Resolving]
  - Anger [Recovering/Resolving]
  - Aggression [Recovering/Resolving]
  - Confusional state [Recovering/Resolving]

NARRATIVE: CASE EVENT DATE: 20200701
